FAERS Safety Report 9118959 (Version 1)
Quarter: 2013Q1

REPORT INFORMATION
  Report Type: Spontaneous
  Country: US (occurrence: US)
  Receive Date: 20130226
  Receipt Date: 20130226
  Transmission Date: 20140127
  Serious: Yes (Other)
  Sender: FDA-Public Use
  Company Number: PHEH2013US004540

PATIENT
  Sex: Female

DRUGS (4)
  1. VIVELLE DOT [Suspect]
     Indication: MENOPAUSE
     Dosage: 0.05 (TWICE A WEEK)
     Route: 062
  2. VIVELLE DOT [Suspect]
     Dosage: 0.025  (TWICE A WEEK)
     Route: 062
  3. RESTORIL [Concomitant]
     Dosage: 15 MG, UNK
  4. PROMETRIUM [Concomitant]
     Dosage: UNK UKN, UNK

REACTIONS (2)
  - Haemorrhage [Unknown]
  - Fibrosis [Unknown]
